FAERS Safety Report 6027984-2 (Version None)
Quarter: 2008Q4

REPORT INFORMATION
  Report Type: 
  Country: None (occurrence: None)
  Receive Date: 20081230
  Receipt Date: 20081216
  Transmission Date: 20090506
  Serious: Yes (Death)
  Sender: FDA-Public Use
  Company Number: GXKR2008DE11995

PATIENT
  Age: 50 Year
  Sex: Female

DRUGS (4)
  1. PREDNISOLONE [Suspect]
     Indication: CUTANEOUS LUPUS ERYTHEMATOSUS
     Dosage: 4-12 MG / DAY, ORAL
     Route: 048
     Dates: start: 19820101, end: 20010101
  2. METHYLPREDNISOLONE 4MG TAB [Suspect]
     Indication: CUTANEOUS LUPUS ERYTHEMATOSUS
     Dosage: 4 2 MG/ DAY, ORAL
     Route: 048
     Dates: start: 19820101
  3. AZATHIOPRINE [Suspect]
     Indication: CUTANEOUS LUPUS ERYTHEMATOSUS
     Dosage: 100-200 MG/ DAY, ORAL
     Route: 048
     Dates: start: 19860101, end: 20010101
  4. CHLOROQUINE PHOSPHATE [Suspect]
     Indication: CUTANEOUS LUPUS ERYTHEMATOSUS
     Dosage: 250 MG / DAY
     Dates: start: 19810101, end: 19860101

REACTIONS (8)
  - BENIGN BREAST NEOPLASM [None]
  - BREAST CANCER METASTATIC [None]
  - BREAST OPERATION [None]
  - LYMPHADENECTOMY [None]
  - METASTASES TO BONE [None]
  - METASTASES TO LIVER [None]
  - METASTASES TO LUNG [None]
  - METASTASES TO LYMPH NODES [None]
